FAERS Safety Report 24902757 (Version 5)
Quarter: 2025Q4

REPORT INFORMATION
  Report Type: Spontaneous
  Country: EU (occurrence: EU)
  Receive Date: 20250130
  Receipt Date: 20251017
  Transmission Date: 20260117
  Serious: Yes (Death, Hospitalization, Other)
  Sender: AUROBINDO
  Company Number: EU-PFIZER INC-PV202500004725

PATIENT
  Age: 67 Year
  Sex: Male
  Weight: 63 kg

DRUGS (28)
  1. PEMETREXED [Suspect]
     Active Substance: PEMETREXED
     Indication: Lung cancer metastatic
     Dosage: 900 MILLIGRAM, CYCLICAL
     Route: 065
  2. PEMETREXED [Suspect]
     Active Substance: PEMETREXED
     Indication: Lung neoplasm malignant
     Dosage: 675 MILLIGRAM, CYCLICAL
     Route: 065
  3. PEMETREXED [Suspect]
     Active Substance: PEMETREXED
     Indication: Metastases to bone
  4. PEMETREXED [Suspect]
     Active Substance: PEMETREXED
     Indication: Metastases to liver
  5. PEMETREXED [Suspect]
     Active Substance: PEMETREXED
     Indication: Metastases to peritoneum
  6. CARBOPLATIN [Suspect]
     Active Substance: CARBOPLATIN
     Indication: Lung cancer metastatic
     Dosage: 650 MILLIGRAM, CYCLICAL
     Route: 065
  7. CARBOPLATIN [Suspect]
     Active Substance: CARBOPLATIN
     Indication: Lung neoplasm malignant
     Dosage: 520 MILLIGRAM, CYCLICAL
     Route: 065
  8. CARBOPLATIN [Suspect]
     Active Substance: CARBOPLATIN
     Indication: Metastases to bone
  9. CARBOPLATIN [Suspect]
     Active Substance: CARBOPLATIN
     Indication: Metastases to liver
  10. CARBOPLATIN [Suspect]
     Active Substance: CARBOPLATIN
     Indication: Metastases to peritoneum
  11. PEMBROLIZUMAB [Suspect]
     Active Substance: PEMBROLIZUMAB
     Indication: Lung cancer metastatic
     Dosage: 139 MILLIGRAM, CYCLICAL
     Route: 065
  12. PEMBROLIZUMAB [Suspect]
     Active Substance: PEMBROLIZUMAB
     Indication: Lung neoplasm malignant
     Dosage: 675 MILLIGRAM, CYCLICAL
     Route: 065
  13. PEMBROLIZUMAB [Suspect]
     Active Substance: PEMBROLIZUMAB
     Indication: Metastases to bone
  14. PEMBROLIZUMAB [Suspect]
     Active Substance: PEMBROLIZUMAB
     Indication: Metastases to liver
  15. PEMBROLIZUMAB [Suspect]
     Active Substance: PEMBROLIZUMAB
     Indication: Metastases to peritoneum
  16. MYCOPHENOLATE MOFETIL [Suspect]
     Active Substance: MYCOPHENOLATE MOFETIL
     Indication: Hepatitis
     Dosage: 2 GRAM, ONCE A DAY
     Route: 065
  17. MYCOPHENOLATE MOFETIL [Suspect]
     Active Substance: MYCOPHENOLATE MOFETIL
     Indication: Drug-induced liver injury
  18. MYCOPHENOLATE MOFETIL [Suspect]
     Active Substance: MYCOPHENOLATE MOFETIL
     Indication: Acute hepatic failure
  19. METHYLPREDNISOLONE SODIUM SUCCINATE [Suspect]
     Active Substance: METHYLPREDNISOLONE SODIUM SUCCINATE
     Indication: Acute hepatic failure
     Dosage: 120 MILLIGRAM, ONCE A DAY
     Route: 065
  20. METHYLPREDNISOLONE SODIUM SUCCINATE [Suspect]
     Active Substance: METHYLPREDNISOLONE SODIUM SUCCINATE
     Indication: Drug-induced liver injury
  21. PREDNISOLONE [Suspect]
     Active Substance: PREDNISOLONE
     Indication: Drug-induced liver injury
     Dosage: 50 MILLIGRAM, ONCE A DAY
     Route: 065
  22. PREDNISOLONE [Suspect]
     Active Substance: PREDNISOLONE
     Indication: Acute hepatic failure
  23. TACROLIMUS [Suspect]
     Active Substance: TACROLIMUS
     Indication: Drug-induced liver injury
     Dosage: 2 MILLIGRAM, TWO TIMES A DAY
     Route: 065
  24. TACROLIMUS [Suspect]
     Active Substance: TACROLIMUS
     Indication: Acute hepatic failure
     Dosage: 4 MILLIGRAM, ONCE A DAY
     Route: 065
  25. METHYLPREDNISOLONE [Concomitant]
     Active Substance: METHYLPREDNISOLONE
     Indication: Hepatitis
     Dosage: 120 MILLIGRAM, ONCE A DAY
     Route: 065
  26. MYCOPHENOLATE MOFETIL [Concomitant]
     Active Substance: MYCOPHENOLATE MOFETIL
     Indication: Hepatitis
     Dosage: 1 GRAM, TWO TIMES A DAY
     Route: 065
  27. MYCOPHENOLATE MOFETIL [Concomitant]
     Active Substance: MYCOPHENOLATE MOFETIL
     Indication: Drug-induced liver injury
  28. MYCOPHENOLATE MOFETIL [Concomitant]
     Active Substance: MYCOPHENOLATE MOFETIL
     Indication: Acute hepatic failure

REACTIONS (10)
  - Acute hepatic failure [Fatal]
  - Drug ineffective for unapproved indication [Fatal]
  - Hepatitis [Fatal]
  - Hepatic encephalopathy [Fatal]
  - Coma [Fatal]
  - Off label use [Fatal]
  - Drug-induced liver injury [Fatal]
  - Drug ineffective [Fatal]
  - Product use issue [Unknown]
  - Incorrect dose administered [Unknown]
